FAERS Safety Report 6167496-9 (Version None)
Quarter: 2009Q2

REPORT INFORMATION
  Report Type: 
  Country: None (occurrence: None)
  Receive Date: 20090424
  Receipt Date: 20090417
  Transmission Date: 20091009
  Serious: Yes (Hospitalization)
  Sender: FDA-Public Use
  Company Number: US-GILEAD-2009-0020920

PATIENT
  Sex: Female
  Weight: 43.25 kg

DRUGS (15)
  1. LETAIRIS [Suspect]
     Indication: PULMONARY ARTERIAL HYPERTENSION
  2. SILDENAFIL CITRATE [Concomitant]
  3. COUMADIN [Concomitant]
  4. PREDNISONE [Concomitant]
  5. LISINOPRIL [Concomitant]
  6. ILOPROST [Concomitant]
  7. PREVACID [Concomitant]
  8. CALCITRIOL [Concomitant]
  9. CALCIUM CARBONATE [Concomitant]
  10. DOCUSATE [Concomitant]
  11. CYMBALTA [Concomitant]
  12. EPOETIN [Concomitant]
  13. FERROUS SULFATE TAB [Concomitant]
  14. LORATADINE [Concomitant]
  15. NAPROXEN [Concomitant]

REACTIONS (2)
  - CHEST PAIN [None]
  - PNEUMONIA [None]
